FAERS Safety Report 6866986-0 (Version None)
Quarter: 2010Q3

REPORT INFORMATION
  Report Type: 
  Country: None (occurrence: None)
  Receive Date: 20100722
  Receipt Date: 20100716
  Transmission Date: 20110219
  Serious: Yes (Life-Threatening)
  Sender: FDA-Public Use
  Company Number: JP-ROCHE-714041

PATIENT
  Age: 76 Year
  Sex: Female
  Weight: 57 kg

DRUGS (9)
  1. ROCEPHIN [Suspect]
     Indication: PRODUCT USED FOR UNKNOWN INDICATION
     Dosage: DOSAGE IS UNCERTAIN.
     Route: 042
     Dates: start: 20100702, end: 20100702
  2. ANTIDIABETIC DRUG NOS [Suspect]
     Indication: PRODUCT USED FOR UNKNOWN INDICATION
     Dosage: DRUG NAME: ANTIDIABETIC AGENT.  OTHER SUSPECT DRUG IS REPORTED AS ^OTHER CARDIOVASCULAR AGENT^
     Route: 065
  3. HUMALOG [Concomitant]
     Dosage: DOSAGE UNCERTAIN
     Route: 042
  4. GLYBURIDE [Concomitant]
     Route: 048
  5. BUFFERIN [Concomitant]
     Route: 048
  6. LIPITOR [Concomitant]
     Route: 048
  7. NU-LOTAN [Concomitant]
     Route: 048
  8. NORVASC [Concomitant]
     Route: 048
  9. SENNOSIDE [Concomitant]
     Route: 048

REACTIONS (2)
  - ANAPHYLACTIC SHOCK [None]
  - HEPATIC FUNCTION ABNORMAL [None]
